FAERS Safety Report 7986989-2 (Version None)
Quarter: 2011Q4

REPORT INFORMATION
  Report Type: 
  Country: None (occurrence: None)
  Receive Date: 20111216
  Receipt Date: 20111214
  Transmission Date: 20120403
  Serious: No
  Sender: FDA-Public Use
  Company Number: US-BAYER-2011-120563

PATIENT
  Sex: Female
  Weight: 73.923 kg

DRUGS (1)
  1. MAGNEVIST [Suspect]
     Indication: NUCLEAR MAGNETIC RESONANCE IMAGING
     Dosage: 16 ML, ONCE
     Route: 042
     Dates: start: 20111214, end: 20111214

REACTIONS (2)
  - VOMITING [None]
  - NAUSEA [None]
